FAERS Safety Report 24298220 (Version 1)
Quarter: 2024Q3

REPORT INFORMATION
  Report Type: Spontaneous
  Country: US (occurrence: None)
  Receive Date: 20240906
  Receipt Date: 20240906
  Transmission Date: 20241017
  Serious: Yes (Hospitalization)
  Sender: Public
  Company Number: None

PATIENT
  Age: 33 Year
  Sex: Female

DRUGS (1)
  1. OPSUMIT [Suspect]
     Active Substance: MACITENTAN
     Indication: Pulmonary hypertension
     Dosage: FREQUENCY : DAILY;?
     Route: 048
     Dates: start: 202004

REACTIONS (5)
  - Chills [None]
  - Pyrexia [None]
  - Nausea [None]
  - Feeling abnormal [None]
  - Abdominal pain upper [None]

NARRATIVE: CASE EVENT DATE: 20240904
